FAERS Safety Report 9941437 (Version 1)
Quarter: 2014Q1

REPORT INFORMATION
  Report Type: Spontaneous
  Country: US (occurrence: US)
  Receive Date: 20140303
  Receipt Date: 20140303
  Transmission Date: 20141002
  Serious: No
  Sender: FDA-Public Use
  Company Number: US-ABBVIE-13P-163-1039942-00

PATIENT
  Age: 52 Year
  Sex: Male
  Weight: 98.97 kg

DRUGS (3)
  1. HUMIRA [Suspect]
     Indication: RHEUMATOID ARTHRITIS
     Dates: start: 2002, end: 2008
  2. IBUPROFEN [Concomitant]
     Indication: PAIN
  3. WELLBUTRIN XL [Concomitant]
     Indication: DEPRESSION

REACTIONS (1)
  - Rheumatoid arthritis [Not Recovered/Not Resolved]
